FAERS Safety Report 7039317-3 (Version None)
Quarter: 2010Q4

REPORT INFORMATION
  Report Type: 
  Country: None (occurrence: None)
  Receive Date: 20101012
  Receipt Date: 20100929
  Transmission Date: 20110411
  Serious: Yes (Hospitalization, Other)
  Sender: FDA-Public Use
  Company Number: ES-CELGENEUS-144-50794-10100005

PATIENT
  Age: 75 Year
  Sex: Male

DRUGS (3)
  1. VIDAZA [Suspect]
     Route: 051
     Dates: start: 20090309
  2. VIDAZA [Suspect]
  3. ONDANSETRON [Concomitant]
     Route: 065

REACTIONS (5)
  - CARDIOTOXICITY [None]
  - NEUTROPENIA [None]
  - PNEUMONIA [None]
  - RESPIRATORY TRACT INFECTION [None]
  - THROMBOCYTOPENIA [None]
